FAERS Safety Report 20451347 (Version 1)
Quarter: 2022Q1

REPORT INFORMATION
  Report Type: Spontaneous
  Country: US (occurrence: US)
  Receive Date: 20220209
  Receipt Date: 20220209
  Transmission Date: 20220423
  Serious: No
  Sender: FDA-Public Use
  Company Number: US-LUNDBECK-DKLU3044088

PATIENT
  Age: 18 Year
  Sex: Female

DRUGS (1)
  1. ONFI [Suspect]
     Active Substance: CLOBAZAM
     Indication: Seizure
     Dosage: 12.5MG/5ML
     Route: 048

REACTIONS (1)
  - Weight abnormal [Not Recovered/Not Resolved]
